FAERS Safety Report 17057664 (Version 1)
Quarter: 2019Q4

REPORT INFORMATION
  Report Type: Spontaneous
  Country: US (occurrence: US)
  Receive Date: 20191120
  Receipt Date: 20191120
  Transmission Date: 20200122
  Serious: Yes (Death)
  Sender: FDA-Public Use
  Company Number: None

PATIENT
  Age: 45 Year
  Sex: Female

DRUGS (4)
  1. ASPIRIN 81MG CHEWABLE TABLET [Concomitant]
  2. METOPROLOL TARTRATE 25MG ORAL TABLET [Concomitant]
  3. POTASSIUM CHLORIDE 8 MEQ ER TABLET [Concomitant]
  4. MAVYRET [Suspect]
     Active Substance: GLECAPREVIR\PIBRENTASVIR
     Indication: CHRONIC HEPATITIS C
     Route: 048
     Dates: start: 20190129

REACTIONS (1)
  - Death [None]
